FAERS Safety Report 20952396 (Version 1)
Quarter: 2022Q2

REPORT INFORMATION
  Report Type: Spontaneous
  Country: US (occurrence: US)
  Receive Date: 20220613
  Receipt Date: 20220613
  Transmission Date: 20220720
  Serious: No
  Sender: FDA-Public Use
  Company Number: US-PFIZER INC-202200829474

PATIENT

DRUGS (2)
  1. LYRICA [Suspect]
     Active Substance: PREGABALIN
     Dosage: 25 MG
     Dates: start: 20220609, end: 20220609
  2. LYRICA [Suspect]
     Active Substance: PREGABALIN
     Dosage: 50 MG
     Dates: start: 20220610

REACTIONS (2)
  - Somnolence [Unknown]
  - Extra dose administered [Unknown]

NARRATIVE: CASE EVENT DATE: 20220610
